FAERS Safety Report 10284179 (Version 1)
Quarter: 2014Q3

REPORT INFORMATION
  Report Type: Spontaneous
  Country: US (occurrence: US)
  Receive Date: 20140708
  Receipt Date: 20140708
  Transmission Date: 20150326
  Serious: No
  Sender: FDA-Public Use
  Company Number: US-PFIZER INC-2014186101

PATIENT
  Sex: Male

DRUGS (1)
  1. DILANTIN-125 [Suspect]
     Active Substance: PHENYTOIN
     Indication: PARTIAL SEIZURES
     Dosage: UNK, ONCE A DAY
     Dates: start: 2011

REACTIONS (3)
  - Extra dose administered [Unknown]
  - Anticonvulsant drug level increased [Unknown]
  - Drug prescribing error [Unknown]
